FAERS Safety Report 4488285-7 (Version None)
Quarter: 2004Q4

REPORT INFORMATION
  Report Type: 
  Country: None (occurrence: None)
  Receive Date: 20041026
  Receipt Date: 20041019
  Transmission Date: 20050328
  Serious: Yes (Death)
  Sender: FDA-Public Use
  Company Number: 163-20785-04090615

PATIENT
  Age: 43 Year
  Sex: Female

DRUGS (1)
  1. THALOMID [Suspect]
     Dosage: 300 MG, QD, ORAL
     Route: 048
     Dates: start: 20021127, end: 20040601

REACTIONS (3)
  - MALIGNANT NEOPLASM PROGRESSION [None]
  - ORGAN FAILURE [None]
  - RENAL CELL CARCINOMA STAGE IV [None]
